FAERS Safety Report 6866136-0 (Version None)
Quarter: 2010Q3

REPORT INFORMATION
  Report Type: 
  Country: None (occurrence: None)
  Receive Date: 20100722
  Receipt Date: 20100712
  Transmission Date: 20110219
  Serious: Yes (Death)
  Sender: FDA-Public Use
  Company Number: GB-ABBOTT-10P-167-0656575-00

PATIENT
  Age: 33 Year
  Sex: Female

DRUGS (1)
  1. EPILIM [Suspect]
     Indication: MENTAL DISORDER
     Route: 048

REACTIONS (1)
  - DEATH [None]
